FAERS Safety Report 12887038 (Version 1)
Quarter: 2016Q4

REPORT INFORMATION
  Report Type: Other
  Country: US (occurrence: US)
  Receive Date: 20161026
  Receipt Date: 20161026
  Transmission Date: 20170207
  Serious: Yes (Hospitalization)
  Sender: FDA-Public Use
  Company Number: US-TRIS PHARMA, INC.-1058896

PATIENT
  Age: 57 Year
  Sex: Male

DRUGS (2)
  1. HYDROCODONE BITARTRATE AND ACETAMINOPHEN [Suspect]
     Active Substance: ACETAMINOPHEN\HYDROCODONE BITARTRATE
  2. HUMIRA [Concomitant]
     Active Substance: ADALIMUMAB
     Dates: start: 2015

REACTIONS (3)
  - Drug ineffective [None]
  - Coronary artery occlusion [None]
  - Vascular stent occlusion [None]

NARRATIVE: CASE EVENT DATE: 201608
